FAERS Safety Report 5775621-4 (Version None)
Quarter: 2008Q2

REPORT INFORMATION
  Report Type: 
  Country: None (occurrence: None)
  Receive Date: 20080617
  Receipt Date: 20080604
  Transmission Date: 20081010
  Serious: Yes (Hospitalization)
  Sender: FDA-Public Use
  Company Number: JP-PFIZER INC-2008049304

PATIENT
  Age: 70 Year
  Sex: Male

DRUGS (2)
  1. MIGLITOL TABLET [Suspect]
     Indication: DIABETES MELLITUS
     Dosage: DAILY DOSE:150MG
     Route: 048
     Dates: start: 20071225, end: 20080508
  2. CHLORMADINONE ACETATE TAB [Suspect]
     Indication: BENIGN PROSTATIC HYPERPLASIA
     Dosage: DAILY DOSE:50MG
     Route: 048
     Dates: start: 20080214, end: 20080508

REACTIONS (2)
  - JAUNDICE [None]
  - LIVER DISORDER [None]
